FAERS Safety Report 16299737 (Version 3)
Quarter: 2019Q2

REPORT INFORMATION
  Report Type: Spontaneous
  Country: US (occurrence: US)
  Receive Date: 20190510
  Receipt Date: 20190610
  Transmission Date: 20190711
  Serious: No
  Sender: FDA-Public Use
  Company Number: US-PFIZER INC-2019192505

PATIENT
  Age: 27 Year
  Sex: Male
  Weight: 88.44 kg

DRUGS (2)
  1. LYRICA CR [Suspect]
     Active Substance: PREGABALIN
     Indication: NEUROMYELITIS OPTICA SPECTRUM DISORDER
     Dosage: 330 MG, 2X/DAY
     Route: 048
  2. LYRICA CR [Suspect]
     Active Substance: PREGABALIN
     Indication: MULTIPLE SCLEROSIS

REACTIONS (3)
  - Product use in unapproved indication [Unknown]
  - Off label use [Unknown]
  - Hyperhidrosis [Unknown]
